FAERS Safety Report 4713039-3 (Version None)
Quarter: 2005Q3

REPORT INFORMATION
  Report Type: 
  Country: None (occurrence: None)
  Receive Date: 20050711
  Receipt Date: 20050628
  Transmission Date: 20060218
  Serious: Yes (Hospitalization)
  Sender: FDA-Public Use
  Company Number: 2005093149

PATIENT
  Age: 83 Year
  Sex: Female

DRUGS (6)
  1. TAHOR (ATORVASTATIN) [Suspect]
     Indication: ILL-DEFINED DISORDER
     Dosage: 40 MG (1 IN 1 D) ORAL
     Route: 048
     Dates: end: 20050507
  2. LEVOTHYROXINE SODIUM [Concomitant]
  3. FUROSEMIDE (FUROSEMIDE) [Concomitant]
  4. FLUINDIONE (FLUINDIONE) [Concomitant]
  5. OMEPRAZOLE [Concomitant]
  6. RAMIPRIL [Concomitant]

REACTIONS (2)
  - CHOLESTASIS [None]
  - CYTOLYTIC HEPATITIS [None]
